FAERS Safety Report 4565563-4 (Version None)
Quarter: 2005Q1

REPORT INFORMATION
  Report Type: 
  Country: None (occurrence: None)
  Receive Date: 20050125
  Receipt Date: 20050125
  Transmission Date: 20050727
  Serious: Yes (Hospitalization)
  Sender: FDA-Public Use
  Company Number: None

PATIENT
  Age: 81 Year
  Sex: Male
  Weight: 63.5036 kg

DRUGS (2)
  1. RITUXIMAB    10MG/ML     IDEC PHARMACEUTICALS [Suspect]
     Indication: HAIRY CELL LEUKAEMIA
     Dosage: 675MG   QD   INTRAVENOU
     Route: 042
     Dates: start: 20050118, end: 20050119
  2. RITUXIMAB    10MG/ML     IDEC PHARMACEUTICALS [Suspect]
     Indication: LYMPHOMA
     Dosage: 675MG   QD   INTRAVENOU
     Route: 042
     Dates: start: 20050118, end: 20050119

REACTIONS (7)
  - BLOOD PRESSURE DECREASED [None]
  - BODY TEMPERATURE INCREASED [None]
  - CHILLS [None]
  - HEART RATE DECREASED [None]
  - NAUSEA [None]
  - TACHYCARDIA [None]
  - VOMITING [None]
